FAERS Safety Report 21303044 (Version 5)
Quarter: 2024Q4

REPORT INFORMATION
  Report Type: Report from Study
  Country: JP (occurrence: JP)
  Receive Date: 20220907
  Receipt Date: 20241203
  Transmission Date: 20250115
  Serious: Yes (Life-Threatening, Hospitalization)
  Sender: ELI LILLY AND COMPANY
  Company Number: JP-ELI_LILLY_AND_COMPANY-JP202208011033

PATIENT
  Age: 94 Year
  Sex: Female
  Weight: 38 kg

DRUGS (4)
  1. RETEVMO [Suspect]
     Active Substance: SELPERCATINIB
     Indication: Thyroid cancer stage IV
     Dosage: 160 MG, BID
     Route: 048
     Dates: start: 20220809, end: 20220823
  2. CILNIDIPINE [Concomitant]
     Active Substance: CILNIDIPINE
     Indication: Hypertension
     Dosage: 10 MG, DAILY
     Route: 048
  3. TIRASHIZIN [Concomitant]
     Dosage: 12.5 MG, DAILY
     Route: 048
     Dates: start: 20220726, end: 20220823
  4. MIYA-BM [Concomitant]
     Active Substance: CLOSTRIDIUM BUTYRICUM SPORES STRAIN M-55
     Indication: Diarrhoea
     Dosage: 0.5 G, TID
     Route: 048
     Dates: start: 20220823, end: 20220826

REACTIONS (2)
  - Abscess neck [Recovering/Resolving]
  - Oropharyngeal fistula [Recovering/Resolving]

NARRATIVE: CASE EVENT DATE: 20220824
